FAERS Safety Report 5882365-7 (Version None)
Quarter: 2008Q3

REPORT INFORMATION
  Report Type: 
  Country: None (occurrence: None)
  Receive Date: 20080913
  Receipt Date: 20080804
  Transmission Date: 20090109
  Serious: No
  Sender: FDA-Public Use
  Company Number: US-ABBOTT-08P-163-0468386-00

PATIENT
  Sex: Female
  Weight: 49.486 kg

DRUGS (1)
  1. HUMIRA [Suspect]
     Indication: RHEUMATOID ARTHRITIS
     Route: 058
     Dates: start: 20080711

REACTIONS (4)
  - ANOREXIA [None]
  - ASTHENIA [None]
  - TREMOR [None]
  - WEIGHT DECREASED [None]
